FAERS Safety Report 24321382 (Version 3)
Quarter: 2025Q1

REPORT INFORMATION
  Report Type: Spontaneous
  Country: CN (occurrence: CN)
  Receive Date: 20240916
  Receipt Date: 20250103
  Transmission Date: 20250408
  Serious: Yes (Hospitalization, Other)
  Sender: ALEXION PHARMACEUTICALS
  Company Number: 2024A210153

PATIENT

DRUGS (4)
  1. PULMICORT RESPULES [Suspect]
     Active Substance: BUDESONIDE
     Route: 065
  2. PULMICORT RESPULES [Suspect]
     Active Substance: BUDESONIDE
     Route: 065
  3. PULMICORT RESPULES [Suspect]
     Active Substance: BUDESONIDE
     Route: 065
  4. PULMICORT RESPULES [Suspect]
     Active Substance: BUDESONIDE
     Route: 065

REACTIONS (6)
  - Hypertension [Recovered/Resolved]
  - Epilepsy [Recovered/Resolved]
  - Hypersensitivity [Recovered/Resolved]
  - Cardiac flutter [Recovered/Resolved]
  - Muscle twitching [Recovered/Resolved]
  - Dyspnoea [Recovered/Resolved]
